FAERS Safety Report 10703716 (Version 1)
Quarter: 2015Q1

REPORT INFORMATION
  Report Type: Report from Study
  Country: CN (occurrence: CN)
  Receive Date: 20150112
  Receipt Date: 20150112
  Transmission Date: 20150721
  Serious: Yes (Other)
  Sender: FDA-Public Use
  Company Number: CN-UCBSA-2015000590

PATIENT

DRUGS (2)
  1. LEVETIRACETAM. [Suspect]
     Active Substance: LEVETIRACETAM
     Dosage: TITRATED DOSES; UNKNOWN DOSE
  2. LEVETIRACETAM. [Suspect]
     Active Substance: LEVETIRACETAM
     Indication: EPILEPSY
     Dosage: 10 MG/KG, 2X/DAY (BID)

REACTIONS (5)
  - Sleep disorder [Unknown]
  - Learning disability [Unknown]
  - Abnormal behaviour [Unknown]
  - Irritability [Unknown]
  - Somnolence [Unknown]
